FAERS Safety Report 10807673 (Version 1)
Quarter: 2015Q1

REPORT INFORMATION
  Report Type: Report from Study
  Country: US (occurrence: US)
  Receive Date: 20150217
  Receipt Date: 20150217
  Transmission Date: 20150721
  Serious: No
  Sender: FDA-Public Use
  Company Number: US-ABBVIE-14K-163-1254039-00

PATIENT
  Age: 28 Year
  Sex: Female

DRUGS (7)
  1. HUMIRA [Suspect]
     Active Substance: ADALIMUMAB
     Indication: CROHN^S DISEASE
     Dates: start: 20130415, end: 20140609
  2. PREDNISONE. [Suspect]
     Active Substance: PREDNISONE
     Dates: start: 20140621
  3. HUMIRA [Suspect]
     Active Substance: ADALIMUMAB
     Dates: start: 20140609
  4. GLYCOPYRROL [Concomitant]
     Indication: HYPERHIDROSIS
  5. PREDNISONE. [Suspect]
     Active Substance: PREDNISONE
     Indication: CROHN^S DISEASE
     Dates: start: 20140609, end: 20140621
  6. QUASENSE [Concomitant]
     Active Substance: ETHINYL ESTRADIOL\LEVONORGESTREL
     Indication: PRODUCT USED FOR UNKNOWN INDICATION
     Dosage: ONE PILL
     Dates: start: 201406
  7. BIRTH CONTROL [Concomitant]
     Active Substance: UNSPECIFIED INGREDIENT
     Indication: CONTRACEPTION

REACTIONS (4)
  - Palpitations [Recovered/Resolved]
  - Crohn^s disease [Not Recovered/Not Resolved]
  - Injection site bruising [Not Recovered/Not Resolved]
  - Drug ineffective [Unknown]

NARRATIVE: CASE EVENT DATE: 201402
